FAERS Safety Report 5384419-0 (Version None)
Quarter: 2007Q3

REPORT INFORMATION
  Report Type: 
  Country: None (occurrence: None)
  Receive Date: 20070711
  Receipt Date: 20070109
  Transmission Date: 20080115
  Serious: No
  Sender: FDA-Public Use
  Company Number: US-AMGEN-KDL206337

PATIENT
  Sex: Female

DRUGS (3)
  1. KINERET [Suspect]
     Indication: POLYCHONDRITIS
     Route: 058
     Dates: start: 20061101
  2. METHOTREXATE [Concomitant]
     Dates: start: 20011201
  3. CELLCEPT [Concomitant]
     Route: 048
     Dates: start: 20060101

REACTIONS (2)
  - DIARRHOEA [None]
  - INJECTION SITE REACTION [None]
